FAERS Safety Report 10842369 (Version 1)
Quarter: 2015Q1

REPORT INFORMATION
  Report Type: Spontaneous
  Country: US (occurrence: US)
  Receive Date: 20150220
  Receipt Date: 20150220
  Transmission Date: 20150721
  Serious: No
  Sender: FDA-Public Use
  Company Number: US-PFIZER INC-2015062175

PATIENT
  Age: 85 Year
  Sex: Male
  Weight: 80 kg

DRUGS (11)
  1. WARFARIN [Concomitant]
     Active Substance: WARFARIN
     Indication: ATRIAL FIBRILLATION
     Dosage: 5 MG (ONE BY MOUTH), DAILY
     Route: 048
     Dates: start: 2008
  2. VITAMIN D [Concomitant]
     Active Substance: CHOLECALCIFEROL
     Dosage: 2 DF, DAILY
     Route: 048
     Dates: start: 2014
  3. LANTUS [Concomitant]
     Active Substance: INSULIN GLARGINE
     Indication: DIABETES MELLITUS
     Dosage: 20 UNITS 1X/DAY
     Route: 058
     Dates: start: 2008
  4. METOPROLOL [Concomitant]
     Active Substance: METOPROLOL
     Indication: CARDIAC DISORDER
     Dosage: 25 MG (ONE BY MOUTH), 2X/DAY
     Route: 048
     Dates: start: 1994
  5. LISINOPRIL. [Concomitant]
     Active Substance: LISINOPRIL
     Indication: BLOOD PRESSURE
     Dosage: 30 MG (ONE BY MOUTH), DAILY
     Route: 048
     Dates: start: 2007
  6. VITAMIN B12 [Concomitant]
     Active Substance: CYANOCOBALAMIN
     Indication: VITAMIN B12 DECREASED
     Dosage: 1000 MG (ONE BY MOUTH), 2X/DAY
     Route: 048
  7. SINEMET [Concomitant]
     Active Substance: CARBIDOPA\LEVODOPA
     Indication: PARKINSON^S DISEASE
     Dosage: 25/100 MG (ONE BY MOUTH), 4X/DAY
     Route: 048
     Dates: start: 2007
  8. METFORMIN [Concomitant]
     Active Substance: METFORMIN HYDROCHLORIDE
     Indication: DIABETES MELLITUS
     Dosage: 1000 MG (ONE BY MOUTH), 2X/DAY
     Route: 048
     Dates: start: 1999
  9. MAGNESIUM [Concomitant]
     Active Substance: MAGNESIUM
     Dosage: 250 MG (ONE BY MOUTH), DAILY
     Route: 048
  10. GEMFIBROZIL. [Concomitant]
     Active Substance: GEMFIBROZIL
     Indication: BLOOD CHOLESTEROL
     Dosage: 600 MG (ONE BY MOUTH), 2X/DAY
     Route: 048
     Dates: start: 1994
  11. LYRICA [Suspect]
     Active Substance: PREGABALIN
     Indication: DIABETIC NEUROPATHY
     Dosage: 50 MG (ONE CAPSULE BY MOUTH AT BEDTIME), 1X/DAY
     Route: 048
     Dates: start: 20150128, end: 20150130

REACTIONS (3)
  - Muscular weakness [Not Recovered/Not Resolved]
  - Skin abrasion [Unknown]
  - Fall [Recovered/Resolved]

NARRATIVE: CASE EVENT DATE: 20150128
